FAERS Safety Report 4567262-1 (Version None)
Quarter: 2005Q1

REPORT INFORMATION
  Report Type: 
  Country: None (occurrence: None)
  Receive Date: 20050127
  Receipt Date: 20050114
  Transmission Date: 20050727
  Serious: Yes (Other)
  Sender: FDA-Public Use
  Company Number: HQWYE670318JAN05

PATIENT
  Age: 64 Year
  Sex: Male
  Weight: 99.88 kg

DRUGS (4)
  1. ADVIL [Suspect]
     Indication: ENDODONTIC PROCEDURE
     Dosage: 1 TO 2 TABS, 4 TO 6 TIMES DAILY, ORAL
     Route: 048
     Dates: end: 20050113
  2. ADVIL [Suspect]
     Indication: TOOTHACHE
     Dosage: 1 TO 2 TABS, 4 TO 6 TIMES DAILY, ORAL
     Route: 048
     Dates: end: 20050113
  3. VITAMIN C (ASCORBID ACID) [Concomitant]
  4. ZESTRIL [Concomitant]

REACTIONS (2)
  - DRUG DEPENDENCE [None]
  - FEELING ABNORMAL [None]
